FAERS Safety Report 21308011 (Version 2)
Quarter: 2022Q4

REPORT INFORMATION
  Report Type: Report from Study
  Country: US (occurrence: US)
  Receive Date: 20220908
  Receipt Date: 20221220
  Transmission Date: 20230113
  Serious: Yes (Death)
  Sender: FDA-Public Use
  Company Number: US-ABBVIE-22K-163-4530425-00

PATIENT
  Age: 40 Year
  Sex: Male
  Weight: 162 kg

DRUGS (6)
  1. RINVOQ [Suspect]
     Active Substance: UPADACITINIB
     Indication: Colitis ulcerative
     Dosage: 30MG, ER, FIRST ADMIN DATE 07/2022
     Route: 048
     Dates: end: 20220903
  2. RINVOQ [Suspect]
     Active Substance: UPADACITINIB
     Indication: Colitis ulcerative
     Dosage: 45 MG, ER, FIRST ADMIN DATE 13 JUL 2022 AND LAST ADMIN DATE JUL 2022
     Route: 048
  3. PANTOPRAZOLE [Concomitant]
     Active Substance: PANTOPRAZOLE
     Indication: Gastrooesophageal reflux disease
     Dosage: FREQUENCY TEXT: DAILY
     Route: 048
     Dates: start: 20160204
  4. ZOLPIDEM [Concomitant]
     Active Substance: ZOLPIDEM TARTRATE
     Indication: Insomnia
     Dosage: FREQUENCY TEXT: QHS
     Route: 048
     Dates: start: 20161221
  5. FLUTICASONE PROPIONATE [Concomitant]
     Active Substance: FLUTICASONE PROPIONATE
     Indication: Rhinitis allergic
     Route: 045
     Dates: start: 20180322
  6. ENALAPRIL MALEATE [Concomitant]
     Active Substance: ENALAPRIL MALEATE
     Indication: Hypertension
     Dosage: FREQUENCY TEXT: DAILY
     Route: 048
     Dates: start: 20161221

REACTIONS (2)
  - Completed suicide [Fatal]
  - Panic attack [Unknown]

NARRATIVE: CASE EVENT DATE: 20220903
